FAERS Safety Report 13618359 (Version 2)
Quarter: 2017Q4

REPORT INFORMATION
  Report Type: Spontaneous
  Country: US (occurrence: US)
  Receive Date: 20170606
  Receipt Date: 20171005
  Transmission Date: 20180320
  Serious: No
  Sender: FDA-Public Use
  Company Number: US-JNJFOC-20170526679

PATIENT
  Age: 72 Year
  Sex: Male
  Weight: 74.84 kg

DRUGS (2)
  1. IMODIUM MULTI-SYMPTOM RELIEF [Suspect]
     Active Substance: DIMETHICONE\LOPERAMIDE HYDROCHLORIDE
     Route: 048
  2. IMODIUM MULTI-SYMPTOM RELIEF [Suspect]
     Active Substance: DIMETHICONE\LOPERAMIDE HYDROCHLORIDE
     Indication: DIARRHOEA
     Dosage: 2 DOSE(S) AFTER TWO LOOSE STOOL, THEN ONE AFTER EACH ADDITIONAL LOOSE STOOL
     Route: 048

REACTIONS (5)
  - Choking sensation [Recovering/Resolving]
  - Product use complaint [Unknown]
  - Pharyngeal disorder [Recovering/Resolving]
  - Incorrect dose administered [Unknown]
  - Product size issue [Unknown]

NARRATIVE: CASE EVENT DATE: 201705
